FAERS Safety Report 20041347 (Version 2)
Quarter: 2021Q4

REPORT INFORMATION
  Report Type: Spontaneous
  Country: None (occurrence: GB)
  Receive Date: 20211107
  Receipt Date: 20211116
  Transmission Date: 20220303
  Serious: Yes (Other)
  Sender: FDA-Public Use
  Company Number: GB-Ascend Therapeutics US, LLC-2121556

PATIENT
  Age: 44 Year
  Sex: Female
  Weight: 61 kg

DRUGS (6)
  1. ESTROGEL [Suspect]
     Active Substance: ESTRADIOL
     Indication: Hormone replacement therapy
     Route: 065
     Dates: start: 20211001
  2. ESTROGEL [Suspect]
     Active Substance: ESTRADIOL
  3. ESTRADIOL [Suspect]
     Active Substance: ESTRADIOL
     Route: 065
     Dates: start: 20211001
  4. CRINONE [Concomitant]
     Active Substance: PROGESTERONE
     Route: 065
  5. THYROXINE SODIUM(LEVOTHYROXINE SODIUM) [Concomitant]
     Route: 065
  6. TOSTRAN(TESTOSTERONE) [Concomitant]
     Route: 065

REACTIONS (6)
  - Therapeutic product effect decreased [Not Recovered/Not Resolved]
  - Anxiety [Not Recovered/Not Resolved]
  - Lethargy [Not Recovered/Not Resolved]
  - Depressed mood [Not Recovered/Not Resolved]
  - Menopausal symptoms [Not Recovered/Not Resolved]
  - Premenstrual dysphoric disorder [Not Recovered/Not Resolved]

NARRATIVE: CASE EVENT DATE: 20211007
